FAERS Safety Report 8936308 (Version 1)
Quarter: 2012Q4

REPORT INFORMATION
  Report Type: 
  Country: US (occurrence: US)
  Receive Date: 20121130
  Receipt Date: 20121130
  Transmission Date: 20130627
  Serious: No
  Sender: FDA-Public Use
  Company Number: US-ABBOTT-12P-163-1003198-00

PATIENT
  Age: 40 Year
  Sex: Male
  Weight: 92.16 kg

DRUGS (2)
  1. ANDROGEL [Suspect]
     Indication: BLOOD TESTOSTERONE DECREASED
     Dosage: 8 pumps
     Route: 061
     Dates: start: 20121022, end: 20121022
  2. ANDROGEL [Suspect]
     Route: 061
     Dates: start: 20121023

REACTIONS (3)
  - Incorrect dose administered [Not Recovered/Not Resolved]
  - Affective disorder [Not Recovered/Not Resolved]
  - Abnormal behaviour [Not Recovered/Not Resolved]
